FAERS Safety Report 5653440-7 (Version None)
Quarter: 2008Q1

REPORT INFORMATION
  Report Type: 
  Country: None (occurrence: None)
  Receive Date: 20080306
  Receipt Date: 20080303
  Transmission Date: 20080703
  Serious: Yes (Death)
  Sender: FDA-Public Use
  Company Number: B0510162A

PATIENT
  Age: 1 Year

DRUGS (9)
  1. MELPHALAN [Suspect]
     Dosage: 70MGM2 PER DAY
     Route: 065
  2. STEM CELL TRANSPLANT [Concomitant]
  3. THIOTEPA [Concomitant]
     Dosage: 600MGM2 PER DAY
  4. ETOPOSIDE [Concomitant]
  5. CYTARABINE [Concomitant]
     Dosage: 12GM2 PER DAY
  6. CYCLOPHOSPHAMIDE [Concomitant]
     Dosage: 120MGK PER DAY
  7. TACROLIMUS [Concomitant]
     Indication: PROPHYLAXIS AGAINST GRAFT VERSUS HOST DISEASE
  8. METHOTREXATE [Concomitant]
     Indication: PROPHYLAXIS AGAINST GRAFT VERSUS HOST DISEASE
  9. METHYLPREDNISOLONE [Concomitant]
     Indication: PROPHYLAXIS AGAINST GRAFT VERSUS HOST DISEASE

REACTIONS (3)
  - DRUG TOXICITY [None]
  - MULTI-ORGAN FAILURE [None]
  - SEROSITIS [None]
